FAERS Safety Report 20397212 (Version 2)
Quarter: 2022Q1

REPORT INFORMATION
  Report Type: Spontaneous
  Country: US (occurrence: US)
  Receive Date: 20220131
  Receipt Date: 20220201
  Transmission Date: 20220423
  Serious: No
  Sender: FDA-Public Use
  Company Number: US-ABBVIE-21K-163-3854081-00

PATIENT
  Sex: Male
  Weight: 81.720 kg

DRUGS (5)
  1. HUMIRA [Suspect]
     Active Substance: ADALIMUMAB
     Indication: Crohn^s disease
     Route: 058
     Dates: start: 2019
  2. COVID-19 VACCINE [Concomitant]
     Indication: COVID-19 immunisation
     Dosage: PFIZER
     Route: 030
     Dates: start: 202103, end: 202103
  3. COVID-19 VACCINE [Concomitant]
     Dosage: PFIZER
     Route: 030
     Dates: start: 20210418, end: 20210418
  4. PREDNISONE [Concomitant]
     Active Substance: PREDNISONE
     Indication: Glucose tolerance impaired
  5. NAPROXEN [Concomitant]
     Active Substance: NAPROXEN
     Indication: Headache

REACTIONS (3)
  - Constipation [Recovered/Resolved]
  - Acne [Recovered/Resolved]
  - Weight decreased [Recovering/Resolving]

NARRATIVE: CASE EVENT DATE: 20210101
